FAERS Safety Report 10179696 (Version 1)
Quarter: 2014Q2

REPORT INFORMATION
  Report Type: Spontaneous
  Country: US (occurrence: US)
  Receive Date: 20140519
  Receipt Date: 20140519
  Transmission Date: 20141212
  Serious: No
  Sender: FDA-Public Use
  Company Number: US-PFIZER INC-2014136607

PATIENT
  Age: 54 Year
  Sex: Male
  Weight: 81.63 kg

DRUGS (2)
  1. CHANTIX [Suspect]
     Indication: SMOKING CESSATION THERAPY
     Dosage: 1 MG, 2X/DAY
  2. LORAZEPAM [Concomitant]
     Dosage: UNK

REACTIONS (1)
  - Dizziness [Unknown]
